FAERS Safety Report 19202905 (Version 2)
Quarter: 2021Q2

REPORT INFORMATION
  Report Type: Report from Study
  Country: BE (occurrence: BE)
  Receive Date: 20210430
  Receipt Date: 20210621
  Transmission Date: 20210717
  Serious: Yes (Hospitalization)
  Sender: FDA-Public Use
  Company Number: BE-PFIZER INC-2021477559

PATIENT
  Age: 69 Year
  Sex: Male
  Weight: 76 kg

DRUGS (6)
  1. GEMCITABINE HYDROCHLORIDE. [Suspect]
     Active Substance: GEMCITABINE HYDROCHLORIDE
     Indication: BLADDER TRANSITIONAL CELL CARCINOMA
     Dosage: 1447 MG, EVERY 3 WEEKS
     Route: 042
     Dates: start: 20210225
  2. AVELUMAB [Suspect]
     Active Substance: AVELUMAB
     Indication: BLADDER TRANSITIONAL CELL CARCINOMA
     Dosage: 760 MG, CYCLIC(ONCE EVERY TWO WEEKS)
     Route: 042
     Dates: start: 20210225
  3. AVELUMAB [Suspect]
     Active Substance: AVELUMAB
     Dosage: 760 MG, CYCLIC(ONCE EVERY TWO WEEKS)
     Route: 042
     Dates: start: 20210409
  4. CISPLATIN. [Suspect]
     Active Substance: CISPLATIN
     Indication: BLADDER TRANSITIONAL CELL CARCINOMA
     Dosage: 101 MG, EVERY 3 WEEKS
     Route: 042
     Dates: start: 20210225
  5. CISPLATIN. [Suspect]
     Active Substance: CISPLATIN
     Dosage: 101 MG, EVERY 3 WEEKS
     Route: 042
     Dates: start: 20210409
  6. GEMCITABINE HYDROCHLORIDE. [Suspect]
     Active Substance: GEMCITABINE HYDROCHLORIDE
     Dosage: 1447 MG, EVERY 3 WEEKS
     Route: 042
     Dates: start: 20210409

REACTIONS (1)
  - Acute coronary syndrome [Recovered/Resolved]

NARRATIVE: CASE EVENT DATE: 20210410
